FAERS Safety Report 5082414-2 (Version None)
Quarter: 2006Q3

REPORT INFORMATION
  Report Type: 
  Country: None (occurrence: None)
  Receive Date: 20060817
  Receipt Date: 20060802
  Transmission Date: 20061208
  Serious: Yes (Hospitalization)
  Sender: FDA-Public Use
  Company Number: JP-JPN-A200602930

PATIENT
  Age: 56 Year
  Sex: Female
  Weight: 55 kg

DRUGS (11)
  1. ZOVIRAX [Suspect]
     Indication: ENCEPHALITIS HERPES
     Dosage: 500MG THREE TIMES PER DAY
     Route: 042
     Dates: start: 20060719, end: 20060720
  2. ZOVIRAX [Suspect]
     Dosage: 750MG THREE TIMES PER DAY
     Route: 042
     Dates: start: 20060721, end: 20060721
  3. ZOVIRAX [Suspect]
     Dosage: 500MG THREE TIMES PER DAY
     Route: 042
     Dates: start: 20060722, end: 20060722
  4. GLYCEOL [Suspect]
     Indication: ENCEPHALITIS HERPES
     Dosage: 200ML TWICE PER DAY
     Route: 042
     Dates: start: 20060719, end: 20060721
  5. DECADRON [Concomitant]
     Indication: ENCEPHALITIS HERPES
     Dosage: 16MG PER DAY
     Route: 042
     Dates: start: 20060719, end: 20060724
  6. ALEVIATIN [Concomitant]
     Indication: CONVULSION
     Route: 042
     Dates: start: 20060719, end: 20060731
  7. ARASENA-A [Concomitant]
     Indication: ENCEPHALITIS HERPES
     Route: 042
     Dates: start: 20060722, end: 20060807
  8. ZANTAC [Concomitant]
     Indication: GASTRIC ULCER
     Dosage: 100MG PER DAY
     Route: 042
     Dates: start: 20060721
  9. FUROSEMIDE [Concomitant]
     Dates: start: 20060722
  10. DOPAMINE HCL [Concomitant]
     Dates: start: 20060722
  11. CARPERITIDE [Concomitant]
     Dates: start: 20060722

REACTIONS (6)
  - BLOOD CREATININE INCREASED [None]
  - DEHYDRATION [None]
  - PULMONARY CONGESTION [None]
  - PULMONARY EMBOLISM [None]
  - RENAL FAILURE ACUTE [None]
  - URINE OUTPUT DECREASED [None]
